FAERS Safety Report 10052217 (Version 1)
Quarter: 2014Q2

REPORT INFORMATION
  Report Type: Spontaneous
  Country: US (occurrence: US)
  Receive Date: 20140402
  Receipt Date: 20140402
  Transmission Date: 20141212
  Serious: Yes (Hospitalization)
  Sender: FDA-Public Use
  Company Number: US-BAYER-2014-049000

PATIENT
  Age: 17 Year
  Sex: Female
  Weight: 95.69 kg

DRUGS (3)
  1. YASMIN [Suspect]
  2. CALADRYL [CALAMINE,PRAMOCAINE HYDROCHLORIDE] [Concomitant]
  3. ZOSYN [Concomitant]
     Indication: CELLULITIS

REACTIONS (2)
  - Thrombophlebitis superficial [Recovered/Resolved]
  - Deep vein thrombosis [Recovered/Resolved]
